FAERS Safety Report 9165410 (Version 2)
Quarter: 2013Q2

REPORT INFORMATION
  Report Type: Spontaneous
  Country: GB (occurrence: None)
  Receive Date: 20130301
  Receipt Date: 20130405
  Transmission Date: 20140414
  Serious: Yes (Hospitalization, Other)
  Sender: FDA-Public Use
  Company Number: GB-CLINIGEN HEALTHCARE LIMITED-003041

PATIENT
  Sex: Male

DRUGS (9)
  1. FOSCAVIR [Suspect]
     Route: 042
     Dates: start: 20130214, end: 20130310
  2. ENOXAPARIN [Concomitant]
  3. TRUVADA [Concomitant]
  4. DAPSONE [Concomitant]
  5. RITONAVIR [Concomitant]
  6. OXYCODONE [Concomitant]
  7. LANSOPRAZOLE [Concomitant]
  8. GABAPENTIN [Concomitant]
  9. DARUNAVIR [Concomitant]

REACTIONS (6)
  - Adverse event [None]
  - Adverse event [None]
  - Electrolyte imbalance [None]
  - Blood potassium decreased [None]
  - Blood magnesium decreased [None]
  - Blood calcium decreased [None]
